FAERS Safety Report 11465849 (Version 1)
Quarter: 2015Q3

REPORT INFORMATION
  Report Type: Report from Study
  Country: US (occurrence: US)
  Receive Date: 20150907
  Receipt Date: 20150907
  Transmission Date: 20151125
  Serious: No
  Sender: FDA-Public Use
  Company Number: PHEH2015US001487

PATIENT
  Age: 53 Year
  Sex: Male
  Weight: 129.25 kg

DRUGS (1)
  1. GILENYA [Suspect]
     Active Substance: FINGOLIMOD HYDROCHLORIDE
     Indication: MULTIPLE SCLEROSIS
     Dosage: 0.5 MG, QD
     Route: 048
     Dates: start: 20150116

REACTIONS (9)
  - Feeling abnormal [Unknown]
  - Dizziness [Unknown]
  - Weight increased [Not Recovered/Not Resolved]
  - Weight decreased [Unknown]
  - Headache [Not Recovered/Not Resolved]
  - Sympathetic ophthalmia [Unknown]
  - Contusion [Unknown]
  - Eye pain [Not Recovered/Not Resolved]
  - Tenderness [Unknown]

NARRATIVE: CASE EVENT DATE: 201502
